FAERS Safety Report 7921565-9 (Version None)
Quarter: 2011Q4

REPORT INFORMATION
  Report Type: 
  Country: None (occurrence: None)
  Receive Date: 20111117
  Receipt Date: 20111114
  Transmission Date: 20120403
  Serious: Yes (Death, Hospitalization, Other)
  Sender: FDA-Public Use
  Company Number: PHHY2011JP95947

PATIENT
  Sex: Female

DRUGS (8)
  1. PURSENNID [Concomitant]
     Dosage: 1 DF, UNK
  2. RISUMIC [Concomitant]
     Dosage: 1 DF, UNK
  3. TASIGNA [Suspect]
     Indication: CHRONIC MYELOID LEUKAEMIA
     Dosage: 400 MG, DAILY
     Route: 048
     Dates: start: 20111019, end: 20111022
  4. RIZE [Concomitant]
     Dosage: 1 DF, UNK
     Route: 048
  5. OMEPRAZOLE [Concomitant]
     Dosage: 1 DF, UNK
  6. AMOBAN [Concomitant]
     Dosage: 1 DF, UNK
     Route: 048
  7. CINACALCET HYDROCHLORIDE [Concomitant]
     Dosage: 1 DF, UNK
  8. CALCIUM CARBONATE [Concomitant]
     Dosage: 3 G, UNK
     Route: 048

REACTIONS (5)
  - STAPHYLOCOCCAL SEPSIS [None]
  - SUPRAVENTRICULAR EXTRASYSTOLES [None]
  - HAEMATEMESIS [None]
  - PLEURAL EFFUSION [None]
  - SEPTIC SHOCK [None]
